FAERS Safety Report 5977790-X (Version None)
Quarter: 2008Q4

REPORT INFORMATION
  Report Type: 
  Country: None (occurrence: None)
  Receive Date: 20081203
  Receipt Date: 20081125
  Transmission Date: 20090506
  Serious: Yes (Other)
  Sender: FDA-Public Use
  Company Number: US-GILEAD-2008-0019041

PATIENT
  Sex: Female

DRUGS (8)
  1. LETAIRIS [Suspect]
     Indication: PULMONARY ARTERIAL HYPERTENSION
     Route: 048
     Dates: start: 20080923
  2. COZAAR [Concomitant]
     Route: 048
  3. ZOCOR [Concomitant]
     Route: 048
  4. ADVAIR HFA [Concomitant]
     Route: 048
  5. SPIRIVA [Concomitant]
     Route: 055
  6. CALCIUM [Concomitant]
     Route: 048
  7. CENTRUM [Concomitant]
     Route: 048
  8. ASPIRIN [Concomitant]
     Indication: PAIN
     Route: 048

REACTIONS (1)
  - OXYGEN SATURATION DECREASED [None]
